FAERS Safety Report 4430274-2 (Version None)
Quarter: 2004Q3

REPORT INFORMATION
  Report Type: 
  Country: None (occurrence: None)
  Receive Date: 20040820
  Receipt Date: 20040812
  Transmission Date: 20050211
  Serious: Yes (Hospitalization)
  Sender: FDA-Public Use
  Company Number: NO-GLAXOSMITHKLINE-B0342432A

PATIENT
  Age: 82 Year
  Sex: Female

DRUGS (6)
  1. SEROXAT [Suspect]
     Indication: DEPRESSION
     Dosage: 30MG PER DAY
     Route: 048
     Dates: end: 20040601
  2. APODORM [Concomitant]
     Dosage: 5MG PER DAY
     Route: 048
  3. SOBRIL [Concomitant]
     Dosage: 5MG PER DAY
     Route: 048
  4. SOMAC [Concomitant]
     Dosage: 40MG PER DAY
     Route: 048
  5. LACTULOSE [Concomitant]
     Dosage: 15ML TWICE PER DAY
     Route: 048
  6. ADALAT [Concomitant]
     Dosage: 30MG PER DAY
     Route: 048

REACTIONS (2)
  - INFECTED CYST [None]
  - PLEURAL EFFUSION [None]
